FAERS Safety Report 25195128 (Version 2)
Quarter: 2025Q2

REPORT INFORMATION
  Report Type: Spontaneous
  Country: US (occurrence: US)
  Receive Date: 20250415
  Receipt Date: 20250521
  Transmission Date: 20250717
  Serious: No
  Sender: SANOFI AVENTIS
  Company Number: US-SA-2025SA099623

PATIENT
  Age: 68 Year
  Sex: Female

DRUGS (13)
  1. DUPIXENT [Suspect]
     Active Substance: DUPILUMAB
     Indication: Dermatitis atopic
     Dosage: 300 MG, QOW
     Route: 058
     Dates: end: 202501
  2. DUPIXENT [Suspect]
     Active Substance: DUPILUMAB
     Dosage: 300 MG, QOW
     Route: 058
     Dates: start: 202503
  3. ACETAMINOPHEN [Concomitant]
     Active Substance: ACETAMINOPHEN
  4. CLOBETASOL [Concomitant]
     Active Substance: CLOBETASOL
  5. FOLIC ACID [Concomitant]
     Active Substance: FOLIC ACID
  6. FUROSEMIDE [Concomitant]
     Active Substance: FUROSEMIDE
  7. METHOTREXATE [Concomitant]
     Active Substance: METHOTREXATE
  8. TACROLIMUS [Concomitant]
     Active Substance: TACROLIMUS
  9. TRAMADOL HCL [Concomitant]
     Active Substance: TRAMADOL HYDROCHLORIDE
  10. ZONISAMIDE [Concomitant]
     Active Substance: ZONISAMIDE
  11. VITAMINS NOS [Concomitant]
     Active Substance: VITAMINS
  12. CLOBETASOL [Concomitant]
     Active Substance: CLOBETASOL
  13. CETAPHIL [BUTYL HYDROXYBENZOATE;CETYL ALCOHOL;PROPYLENE GLYCOL;SODIUM [Concomitant]

REACTIONS (5)
  - Blister [Not Recovered/Not Resolved]
  - Therapeutic response decreased [Unknown]
  - Rebound atopic dermatitis [Not Recovered/Not Resolved]
  - Rash macular [Not Recovered/Not Resolved]
  - Blood iron decreased [Not Recovered/Not Resolved]

NARRATIVE: CASE EVENT DATE: 20250101
